FAERS Safety Report 22346669 (Version 2)
Quarter: 2023Q2

REPORT INFORMATION
  Report Type: Report from Study
  Country: EG (occurrence: EG)
  Receive Date: 20230520
  Receipt Date: 20230530
  Transmission Date: 20230722
  Serious: Yes (Other)
  Sender: FDA-Public Use
  Company Number: EG-002147023-NVSC2023EG113736

PATIENT
  Age: 20 Year
  Sex: Female

DRUGS (3)
  1. COSENTYX [Suspect]
     Active Substance: SECUKINUMAB
     Indication: Ankylosing spondylitis
     Dosage: 1 DOSAGE FORM, QW (1 PREFILLED PEN WEEKLY SINCE STARTING COSENTYX TILL NOW)
     Route: 058
     Dates: start: 202207
  2. COSENTYX [Suspect]
     Active Substance: SECUKINUMAB
     Dosage: 1 DOSAGE FORM, QMO (THE PATIENT CHANGED HER DOSE TO 1 PREFILLED PEN MONTHLY AS A MAINTENANCE DOSE WI
     Route: 058
  3. FEROGLOBIN [Concomitant]
     Indication: Anaemia
     Dosage: 1 DOSAGE FORM, QD (DURING THE 1ST 6 MONTHS OF COSENTYX)
     Route: 065

REACTIONS (7)
  - Back pain [Recovered/Resolved]
  - Gait inability [Recovered/Resolved]
  - Fall [Recovered/Resolved]
  - Illness [Recovered/Resolved]
  - Product dispensing error [Unknown]
  - Inappropriate schedule of product administration [Unknown]
  - Product prescribing error [Not Recovered/Not Resolved]

NARRATIVE: CASE EVENT DATE: 20220701
